FAERS Safety Report 23995693 (Version 1)
Quarter: 2024Q2

REPORT INFORMATION
  Report Type: Spontaneous
  Country: US (occurrence: US)
  Receive Date: 20240620
  Receipt Date: 20240620
  Transmission Date: 20240716
  Serious: No
  Sender: FDA-Public Use
  Company Number: US-ABBVIE-5797363

PATIENT

DRUGS (2)
  1. SYNTHROID [Suspect]
     Active Substance: LEVOTHYROXINE SODIUM
     Indication: Maternal exposure timing unspecified
     Route: 063
  2. SYNTHROID [Suspect]
     Active Substance: LEVOTHYROXINE SODIUM
     Indication: Maternal exposure timing unspecified
     Route: 064

REACTIONS (5)
  - Foetal exposure during pregnancy [Unknown]
  - Speech disorder developmental [Unknown]
  - Motor developmental delay [Unknown]
  - Jaundice [Recovered/Resolved]
  - Exposure via breast milk [Unknown]

NARRATIVE: CASE EVENT DATE: 20200101
